FAERS Safety Report 20984213 (Version 2)
Quarter: 2022Q3

REPORT INFORMATION
  Report Type: Spontaneous
  Country: US (occurrence: US)
  Receive Date: 20220621
  Receipt Date: 20220702
  Transmission Date: 20221027
  Serious: Yes (Other)
  Sender: FDA-Public Use
  Company Number: US-MLMSERVICE-20220602-3593236-1

PATIENT
  Age: 63 Year
  Sex: Male

DRUGS (3)
  1. METHYLPHENIDATE HYDROCHLORIDE [Suspect]
     Active Substance: METHYLPHENIDATE HYDROCHLORIDE
     Indication: Fatigue
     Dosage: 5 MILLIGRAM, TWO TIMES A DAY
     Route: 065
  2. CLONAZEPAM [Concomitant]
     Active Substance: CLONAZEPAM
     Indication: Parkinson^s disease
     Dosage: 0.5 MILLIGRAM, ONCE A DAY (AT BED TIME)
     Route: 065
  3. MELATONIN [Concomitant]
     Active Substance: MELATONIN
     Indication: Product used for unknown indication
     Dosage: 10 MILLIGRAM, ONCE A DAY (AT BED TIME)
     Route: 065

REACTIONS (4)
  - Anxiety [Recovered/Resolved]
  - Affect lability [Recovered/Resolved]
  - Personality change [Recovered/Resolved]
  - Dyskinesia [Recovered/Resolved]
